APPROVED DRUG PRODUCT: LEVOFLOXACIN
Active Ingredient: LEVOFLOXACIN
Strength: EQ 750MG/30ML (EQ 25MG/ML)
Dosage Form/Route: INJECTABLE;INJECTION
Application: A078577 | Product #002
Applicant: HOSPIRA INC
Approved: Aug 12, 2015 | RLD: No | RS: No | Type: DISCN